FAERS Safety Report 6509661-4 (Version None)
Quarter: 2009Q4

REPORT INFORMATION
  Report Type: 
  Country: None (occurrence: None)
  Receive Date: 20091217
  Receipt Date: 20091120
  Transmission Date: 20100525
  Serious: Yes (Disabling)
  Sender: FDA-Public Use
  Company Number: CH-EBEWE-0513MTX09

PATIENT
  Age: 80 Year
  Sex: Female
  Weight: 58 kg

DRUGS (4)
  1. METHOTREXATE [Suspect]
     Indication: RHEUMATOID ARTHRITIS
  2. BONIVA [Suspect]
     Indication: OSTEOPOROSIS
     Dosage: 150 MG 1/MONTH ORAL
     Route: 048
     Dates: start: 20070101, end: 20090107
  3. PREDNISONE [Concomitant]
  4. LEUCOCORIN (FOLINIC ACID) [Concomitant]

REACTIONS (2)
  - OSTEOMYELITIS [None]
  - OSTEONECROSIS [None]
